FAERS Safety Report 18177864 (Version 1)
Quarter: 2020Q3

REPORT INFORMATION
  Report Type: Spontaneous
  Country: US (occurrence: US)
  Receive Date: 20200821
  Receipt Date: 20200821
  Transmission Date: 20201103
  Serious: Yes (Hospitalization)
  Sender: FDA-Public Use
  Company Number: US-ACTELION-A-NJ2020-208481

PATIENT
  Sex: Female

DRUGS (10)
  1. CLOBAZAM. [Concomitant]
     Active Substance: CLOBAZAM
     Dosage: 10 MG, BID
     Dates: start: 20191205
  2. BACLOFEN. [Concomitant]
     Active Substance: BACLOFEN
     Dosage: 10 MG, BID
     Dates: start: 20191205
  3. PREVACID [Concomitant]
     Active Substance: LANSOPRAZOLE
     Dosage: 15 MG, QD
     Dates: start: 20191205
  4. FELBAMATE. [Concomitant]
     Active Substance: FELBAMATE
     Dosage: 400 MG, TID
     Dates: start: 20191205
  5. VIMPAT [Concomitant]
     Active Substance: LACOSAMIDE
     Dosage: 100 MG, BID
     Dates: start: 20191205
  6. ZYRTEC [Concomitant]
     Active Substance: CETIRIZINE HYDROCHLORIDE
     Dosage: 10 MG, QD
     Dates: start: 20191205
  7. ZAVESCA [Suspect]
     Active Substance: MIGLUSTAT
     Indication: PRODUCT USED FOR UNKNOWN INDICATION
     Dosage: 100 MG, TID
     Route: 048
     Dates: start: 20191205
  8. CHILDRENS TYLENOL [Concomitant]
     Active Substance: ACETAMINOPHEN
     Dosage: UNK, PRN
     Dates: start: 20191205
  9. ALBUTEROL SULFATE. [Concomitant]
     Active Substance: ALBUTEROL SULFATE
     Dosage: UNK, QID
     Dates: start: 20191205
  10. VITAMINS NOS [Concomitant]
     Active Substance: VITAMINS
     Dosage: UNK, QD
     Dates: start: 20191205

REACTIONS (1)
  - Urinary tract infection [Unknown]
